FAERS Safety Report 7416107-0 (Version None)
Quarter: 2011Q2

REPORT INFORMATION
  Report Type: 
  Country: None (occurrence: None)
  Receive Date: 20110414
  Receipt Date: 20110402
  Transmission Date: 20111010
  Serious: Yes (Hospitalization)
  Sender: FDA-Public Use
  Company Number: JP-ELI_LILLY_AND_COMPANY-JP201104001338

PATIENT
  Age: 12 Year
  Sex: Male

DRUGS (1)
  1. ZYPREXA [Suspect]
     Dosage: UNK, SINGLE
     Route: 048
     Dates: start: 20110401, end: 20110401

REACTIONS (7)
  - CONVULSION [None]
  - DIZZINESS [None]
  - ACCIDENTAL OVERDOSE [None]
  - ACCIDENTAL EXPOSURE [None]
  - LOSS OF CONSCIOUSNESS [None]
  - MIOSIS [None]
  - THINKING ABNORMAL [None]
